FAERS Safety Report 24434737 (Version 1)
Quarter: 2024Q4

REPORT INFORMATION
  Report Type: Spontaneous
  Country: TR (occurrence: TR)
  Receive Date: 20241014
  Receipt Date: 20241014
  Transmission Date: 20250114
  Serious: Yes (Hospitalization)
  Sender: AMERICAN REGENT
  Company Number: TR-AMERICAN REGENT INC-2024003844

PATIENT
  Age: 21 Year
  Sex: Female

DRUGS (1)
  1. FERINJECT [Suspect]
     Active Substance: FERRIC CARBOXYMALTOSE
     Indication: Product used for unknown indication
     Dosage: 500 MG,1 IN 1 TOTAL
     Route: 042
     Dates: start: 20240930, end: 20240930

REACTIONS (3)
  - Foaming at mouth [Recovered/Resolved]
  - Dyspnoea [Recovered/Resolved]
  - Chest pain [Recovered/Resolved]

NARRATIVE: CASE EVENT DATE: 20240930
